FAERS Safety Report 8574518-4 (Version None)
Quarter: 2012Q3

REPORT INFORMATION
  Report Type: 
  Country: None (occurrence: None)
  Receive Date: 20120806
  Receipt Date: 20120726
  Transmission Date: 20120928
  Serious: Yes (Other)
  Sender: FDA-Public Use
  Company Number: US-RB-042406-12

PATIENT
  Age: 53 Year
  Sex: Female

DRUGS (2)
  1. SUBOXONE [Suspect]
     Indication: PRODUCT USED FOR UNKNOWN INDICATION
     Dosage: DOSING DETAILS UNKNOWN
     Route: 065
  2. CHANTIX [Suspect]
     Indication: SMOKING CESSATION THERAPY
     Dosage: DOSING DETAILS UNKNOWN
     Route: 065

REACTIONS (24)
  - UNDERDOSE [None]
  - EAR PAIN [None]
  - LABYRINTHITIS [None]
  - EUPHORIC MOOD [None]
  - SNEEZING [None]
  - PNEUMONIA [None]
  - LUNG NEOPLASM [None]
  - WRONG TECHNIQUE IN DRUG USAGE PROCESS [None]
  - CARPAL TUNNEL SYNDROME [None]
  - PROCEDURAL PAIN [None]
  - EMPHYSEMA [None]
  - DEPRESSION [None]
  - GLAUCOMA [None]
  - PAIN [None]
  - NASAL SEPTUM DEVIATION [None]
  - FEELING JITTERY [None]
  - INTERVERTEBRAL DISC DEGENERATION [None]
  - NECK PAIN [None]
  - HEADACHE [None]
  - PYREXIA [None]
  - ASTHENIA [None]
  - DRUG WITHDRAWAL SYNDROME [None]
  - NERVOUSNESS [None]
  - BRONCHITIS [None]
